FAERS Safety Report 13337448 (Version 1)
Quarter: 2017Q1

REPORT INFORMATION
  Report Type: Spontaneous
  Country: US (occurrence: US)
  Receive Date: 20170314
  Receipt Date: 20170314
  Transmission Date: 20170428
  Serious: Yes (Other)
  Sender: FDA-Public Use
  Company Number: None

PATIENT
  Age: 64 Year
  Sex: Female

DRUGS (1)
  1. REVLIMID [Suspect]
     Active Substance: LENALIDOMIDE
     Indication: PLASMA CELL MYELOMA
     Route: 048
     Dates: start: 201404, end: 201407

REACTIONS (6)
  - Rash [None]
  - Myalgia [None]
  - Dysphagia [None]
  - Chest discomfort [None]
  - Abdominal pain [None]
  - Neuropathy peripheral [None]

NARRATIVE: CASE EVENT DATE: 20140722
